FAERS Safety Report 6991844-0 (Version None)
Quarter: 2010Q3

REPORT INFORMATION
  Report Type: 
  Country: None (occurrence: None)
  Receive Date: 20100917
  Receipt Date: 20100907
  Transmission Date: 20110219
  Serious: Yes (Hospitalization)
  Sender: FDA-Public Use
  Company Number: FR-PFIZER INC-2010112576

PATIENT
  Age: 63 Year
  Sex: Female

DRUGS (3)
  1. ZOLOFT [Suspect]
     Indication: DEPRESSION
     Dosage: 1 DF, 1X/DAY
     Route: 048
     Dates: start: 20100805, end: 20100822
  2. RISPERDAL [Concomitant]
     Dosage: 2 MG, DAILY
     Route: 048
  3. ATARAX [Concomitant]
     Dosage: 25 MG, 3X/DAY
     Route: 048

REACTIONS (3)
  - HEPATOCELLULAR INJURY [None]
  - LIPASE INCREASED [None]
  - VOMITING [None]
